FAERS Safety Report 6557743-3 (Version None)
Quarter: 2010Q1

REPORT INFORMATION
  Report Type: 
  Country: None (occurrence: None)
  Receive Date: 20100128
  Receipt Date: 20100128
  Transmission Date: 20100710
  Serious: Yes (Other)
  Sender: FDA-Public Use
  Company Number: None

PATIENT
  Sex: Female
  Weight: 68.0396 kg

DRUGS (14)
  1. RESTASIS [Suspect]
     Indication: DRY EYE
     Dosage: 1 GTT BID EYE
     Dates: start: 20090722, end: 20090822
  2. ALPHAGAN [Concomitant]
  3. COSOPT [Concomitant]
  4. LUMIGAN [Concomitant]
  5. CALCIUM [Concomitant]
  6. MAGNESIUM [Concomitant]
  7. VITAMIN-C [Concomitant]
  8. VITAMIN A [Concomitant]
  9. VITAMIN E [Concomitant]
  10. COD LIVER OIL [Concomitant]
  11. ZINC [Concomitant]
  12. VITAMIN D [Concomitant]
  13. XEAXITHENE [Concomitant]
  14. LUTEIN [Concomitant]

REACTIONS (1)
  - MUSCULAR WEAKNESS [None]
